FAERS Safety Report 22074764 (Version 1)
Quarter: 2023Q1

REPORT INFORMATION
  Report Type: Report from Study
  Country: CA (occurrence: CA)
  Receive Date: 20230308
  Receipt Date: 20230308
  Transmission Date: 20230417
  Serious: Yes (Other)
  Sender: FDA-Public Use
  Company Number: CA-GILEAD-2022-0606499

PATIENT
  Age: 52 Year
  Sex: Female

DRUGS (8)
  1. SACITUZUMAB GOVITECAN-HZIY [Suspect]
     Active Substance: SACITUZUMAB GOVITECAN-HZIY
     Indication: Triple negative breast cancer
     Dosage: 1084 MG, DAY1, 8
     Route: 042
     Dates: start: 20221123
  2. SACITUZUMAB GOVITECAN-HZIY [Suspect]
     Active Substance: SACITUZUMAB GOVITECAN-HZIY
     Dosage: 1000 MG
     Route: 042
     Dates: start: 20221221, end: 20221228
  3. SACITUZUMAB GOVITECAN-HZIY [Suspect]
     Active Substance: SACITUZUMAB GOVITECAN-HZIY
     Dosage: 1000 MG
     Route: 042
     Dates: end: 20230119
  4. PACLITAXEL [Concomitant]
     Active Substance: PACLITAXEL
     Dosage: 1084 MG
     Route: 042
     Dates: start: 20221123
  5. CAPECITABINE [Concomitant]
     Active Substance: CAPECITABINE
  6. ZOMETA [Concomitant]
     Active Substance: ZOLEDRONIC ACID
  7. LEVOTHYROXINE [Concomitant]
     Active Substance: LEVOTHYROXINE
  8. MAGNESIUM [Concomitant]
     Active Substance: MAGNESIUM

REACTIONS (11)
  - Disease progression [Unknown]
  - Weight decreased [Unknown]
  - Weight fluctuation [Recovered/Resolved]
  - Weight fluctuation [Not Recovered/Not Resolved]
  - Weight fluctuation [Unknown]
  - Weight fluctuation [Unknown]
  - White blood cell count decreased [Unknown]
  - Incorrect dose administered [Unknown]
  - Inappropriate schedule of product administration [Unknown]
  - Inappropriate schedule of product administration [Unknown]
  - Inappropriate schedule of product administration [Unknown]

NARRATIVE: CASE EVENT DATE: 20221212
